FAERS Safety Report 5466970-8 (Version None)
Quarter: 2007Q3

REPORT INFORMATION
  Report Type: 
  Country: None (occurrence: None)
  Receive Date: 20070925
  Receipt Date: 20070918
  Transmission Date: 20080115
  Serious: Yes (Hospitalization)
  Sender: FDA-Public Use
  Company Number: JP-GENENTECH-243867

PATIENT
  Age: 79 Year
  Sex: Male

DRUGS (6)
  1. ACTIVASE [Suspect]
     Indication: CAROTID ARTERY STENOSIS
     Dosage: 38.9 MG/65 KG
     Route: 042
     Dates: start: 20070317, end: 20070317
  2. RADICUT [Concomitant]
     Indication: DRUG USE FOR UNKNOWN INDICATION
     Dates: start: 20070317, end: 20070331
  3. ASPIRIN [Concomitant]
     Indication: DRUG USE FOR UNKNOWN INDICATION
     Dates: start: 20070317
  4. ASPIRIN [Concomitant]
     Dates: start: 20070318, end: 20070319
  5. PLAVIX [Concomitant]
     Indication: DRUG USE FOR UNKNOWN INDICATION
     Dates: start: 20070318, end: 20070319
  6. ZANTAC [Concomitant]
     Indication: DRUG USE FOR UNKNOWN INDICATION
     Dates: start: 20070323, end: 20070411

REACTIONS (3)
  - ANAEMIA [None]
  - GASTRIC CANCER [None]
  - INTRA-ABDOMINAL HAEMORRHAGE [None]
